FAERS Safety Report 21905586 (Version 1)
Quarter: 2023Q1

REPORT INFORMATION
  Report Type: Spontaneous
  Country: US (occurrence: None)
  Receive Date: 20230124
  Receipt Date: 20230124
  Transmission Date: 20230417
  Serious: Yes (Death)
  Sender: FDA-Public Use
  Company Number: None

PATIENT
  Age: 84 Year
  Sex: Male

DRUGS (1)
  1. DROXIDOPA [Suspect]
     Active Substance: DROXIDOPA
     Indication: Hypotension
     Dosage: FREQUENCY : TWICE A DAY;?
     Route: 048
     Dates: start: 20210430, end: 20221029

REACTIONS (1)
  - Death [None]

NARRATIVE: CASE EVENT DATE: 20221029
